FAERS Safety Report 10009920 (Version 2)
Quarter: 2014Q1

REPORT INFORMATION
  Report Type: Spontaneous
  Country: US (occurrence: US)
  Receive Date: 20140312
  Receipt Date: 20140312
  Transmission Date: 20141002
  Serious: Yes (Other)
  Sender: FDA-Public Use
  Company Number: US-INCYTE CORPORATION-2012IN002447

PATIENT
  Age: 96 Year
  Sex: Male
  Weight: 49.43 kg

DRUGS (9)
  1. JAKAFI [Suspect]
     Indication: MYELOFIBROSIS
     Dosage: NOT SPECIFIED
     Route: 048
     Dates: start: 2012, end: 2012
  2. JAKAFI [Suspect]
     Dosage: 10 MG, QD, 5 DAYS A WEEK
     Route: 048
     Dates: start: 2012
  3. JAKAFI [Suspect]
     Dosage: 5 MG, QD, 5 DAYS A WEEK
  4. JAKAFI [Suspect]
     Dosage: 5 MG, QD, 3 DAYS A WEEK
     Route: 048
     Dates: start: 20121126
  5. COREG [Concomitant]
  6. FOSAMAX [Concomitant]
  7. LEVOTHYROXINE [Concomitant]
  8. FUROSEMIDE [Concomitant]
  9. ASPIRIN [Concomitant]

REACTIONS (4)
  - Haemoglobin decreased [Recovering/Resolving]
  - Platelet count decreased [Recovering/Resolving]
  - White blood cell count decreased [Recovered/Resolved]
  - Haematocrit decreased [Recovering/Resolving]
